FAERS Safety Report 6566317-X (Version None)
Quarter: 2010Q1

REPORT INFORMATION
  Report Type: 
  Country: None (occurrence: None)
  Receive Date: 20100202
  Receipt Date: 20100121
  Transmission Date: 20100710
  Serious: Yes (Death, Hospitalization)
  Sender: FDA-Public Use
  Company Number: IN-ELI_LILLY_AND_COMPANY-IN201001004489

PATIENT
  Age: 82 Year
  Sex: Female

DRUGS (3)
  1. FORTEO [Suspect]
     Indication: OSTEOPOROSIS
     Dosage: 20 UG, DAILY (1/D)
     Route: 058
     Dates: start: 20090101
  2. CALCIUM [Concomitant]
     Dosage: UNK, UNKNOWN
  3. VITAMIN D [Concomitant]
     Dosage: UNK, UNKNOWN

REACTIONS (2)
  - DEATH [None]
  - PYREXIA [None]
